FAERS Safety Report 5496263-4 (Version None)
Quarter: 2007Q4

REPORT INFORMATION
  Report Type: 
  Country: None (occurrence: None)
  Receive Date: 20071025
  Receipt Date: 20070412
  Transmission Date: 20080405
  Serious: No
  Sender: FDA-Public Use
  Company Number: A0643702A

PATIENT
  Age: 59 Year
  Sex: Female

DRUGS (5)
  1. ADVAIR DISKUS 100/50 [Suspect]
     Indication: PULMONARY FIBROSIS
     Dosage: 1PUFF UNKNOWN
     Route: 055
     Dates: start: 20060501
  2. ALBUTEROL [Concomitant]
  3. COMBIVENT [Concomitant]
  4. IPRATROPIUM BROMIDE [Concomitant]
  5. PULMICORT [Concomitant]

REACTIONS (2)
  - MUSCLE SPASMS [None]
  - PAIN IN EXTREMITY [None]
